FAERS Safety Report 14499585 (Version 1)
Quarter: 2018Q1

REPORT INFORMATION
  Report Type: Spontaneous
  Country: US (occurrence: US)
  Receive Date: 20180207
  Receipt Date: 20180207
  Transmission Date: 20180509
  Serious: No
  Sender: FDA-Public Use
  Company Number: US-PERRIGO-17US024767

PATIENT
  Age: 71 Year
  Sex: Female
  Weight: 90.7 kg

DRUGS (11)
  1. OMEPRAZOLE. [Concomitant]
     Active Substance: OMEPRAZOLE
     Indication: GASTRIC DISORDER
     Dosage: UNK
     Route: 065
     Dates: start: 2015
  2. AFRIN [Concomitant]
     Active Substance: OXYMETAZOLINE
     Indication: PERENNIAL ALLERGY
     Dosage: UNK
     Route: 045
  3. SALINE                             /00075401/ [Concomitant]
     Active Substance: SODIUM CHLORIDE
     Indication: PERENNIAL ALLERGY
     Dosage: UNK
     Route: 045
  4. ASMANEX [Concomitant]
     Active Substance: MOMETASONE FUROATE
     Indication: EMPHYSEMA
     Dosage: UNK
     Route: 065
     Dates: start: 2017
  5. CETIRIZINE HYDROCHLORIDE. [Suspect]
     Active Substance: CETIRIZINE HYDROCHLORIDE
     Indication: PERENNIAL ALLERGY
     Dosage: 10 MG, NIGHTLY
     Route: 048
     Dates: start: 201703
  6. SUDAFED 12 HOUR [Concomitant]
     Active Substance: PSEUDOEPHEDRINE HYDROCHLORIDE
     Indication: HYPERSENSITIVITY
     Dosage: UNK, PRN
     Route: 065
  7. ASPIRIN                            /00002701/ [Concomitant]
     Active Substance: ASPIRIN
     Indication: PROPHYLAXIS
     Dosage: 81 MG
     Route: 065
     Dates: start: 2015
  8. SPIRIVA [Concomitant]
     Active Substance: TIOTROPIUM BROMIDE MONOHYDRATE
     Indication: EMPHYSEMA
     Dosage: UNK
     Route: 055
     Dates: start: 2017
  9. CETIRIZINE HYDROCHLORIDE. [Suspect]
     Active Substance: CETIRIZINE HYDROCHLORIDE
     Dosage: 10 MG, TWICE IN LESS THAN 24 HOURS
     Route: 048
     Dates: start: 20170626, end: 20170627
  10. LISINOPRIL HCT                     /01613901/ [Concomitant]
     Active Substance: HYDROCHLOROTHIAZIDE\LISINOPRIL
     Indication: HYPERTENSION
     Dosage: UNK
     Route: 065
     Dates: start: 2012
  11. VICTOZA [Concomitant]
     Active Substance: LIRAGLUTIDE
     Indication: TYPE 2 DIABETES MELLITUS
     Dosage: UNK
     Route: 065
     Dates: start: 2015

REACTIONS (3)
  - Drug administered to patient of inappropriate age [Unknown]
  - Condition aggravated [Not Recovered/Not Resolved]
  - Wrong drug administered [Recovered/Resolved]

NARRATIVE: CASE EVENT DATE: 201703
